FAERS Safety Report 5448057-3 (Version None)
Quarter: 2007Q3

REPORT INFORMATION
  Report Type: 
  Country: None (occurrence: None)
  Receive Date: 20070910
  Receipt Date: 20070905
  Transmission Date: 20080115
  Serious: Yes (Life-Threatening)
  Sender: FDA-Public Use
  Company Number: JP-GILEAD-2007-0013240

PATIENT
  Sex: Male

DRUGS (8)
  1. VIREAD [Suspect]
     Indication: HIV INFECTION
     Route: 048
     Dates: start: 20040203, end: 20061114
  2. FUZEON [Suspect]
     Indication: HIV INFECTION
     Route: 058
     Dates: start: 20041219, end: 20050624
  3. EPIVIR [Concomitant]
     Dates: start: 20030204, end: 20061211
  4. ZITHROMAC [Concomitant]
     Dates: start: 20040401
  5. BAKTAR [Concomitant]
     Dates: start: 20040401
  6. NORVIR [Concomitant]
     Dates: start: 20040407, end: 20070317
  7. RETROVIR [Concomitant]
     Dates: start: 20050927, end: 20061211
  8. APTIVUS [Concomitant]
     Dates: start: 20060131, end: 20060821

REACTIONS (1)
  - RENAL FAILURE CHRONIC [None]
